FAERS Safety Report 4781350-6 (Version None)
Quarter: 2005Q3

REPORT INFORMATION
  Report Type: 
  Country: None (occurrence: None)
  Receive Date: 20050928
  Receipt Date: 20050804
  Transmission Date: 20060218
  Serious: Yes (Hospitalization)
  Sender: FDA-Public Use
  Company Number: PHFR2005GB02676

PATIENT
  Age: 74 Year
  Sex: Female

DRUGS (4)
  1. ZOMETA [Suspect]
     Indication: MULTIPLE MYELOMA
     Dosage: 4MG/DAY
     Route: 042
     Dates: start: 20050207, end: 20050727
  2. MOVICOL [Concomitant]
     Indication: CONSTIPATION
     Dosage: UNK
     Route: 065
  3. CO-DANTHRAMER [Concomitant]
     Route: 065
  4. THALIDOMIDE [Concomitant]
     Indication: MULTIPLE MYELOMA
     Dosage: 50 MG/DAY
     Route: 048
     Dates: start: 20050301

REACTIONS (4)
  - BLOOD PRESSURE DECREASED [None]
  - BRADYCARDIA [None]
  - DIZZINESS [None]
  - SYNCOPE [None]
